FAERS Safety Report 6916351-2 (Version None)
Quarter: 2010Q3

REPORT INFORMATION
  Report Type: 
  Country: None (occurrence: None)
  Receive Date: 20100810
  Receipt Date: 20100804
  Transmission Date: 20110219
  Serious: Yes (Congenital Anomaly)
  Sender: FDA-Public Use
  Company Number: GB-TEVA-243869ISR

PATIENT

DRUGS (4)
  1. CITALOPRAM HYDROBROMIDE [Suspect]
     Indication: ANXIETY
     Route: 064
     Dates: start: 20090923
  2. DIAZEPAM [Suspect]
     Indication: ANXIETY
     Route: 064
     Dates: start: 20090827
  3. TRAZODONE [Suspect]
     Indication: ANXIETY
     Route: 064
     Dates: start: 20090828, end: 20091101
  4. BETAMETHASONE VALERATE [Suspect]
     Indication: DERMATITIS
     Dates: start: 20100415

REACTIONS (2)
  - CLEFT PALATE [None]
  - MATERNAL DRUGS AFFECTING FOETUS [None]
